FAERS Safety Report 5127437-X (Version None)
Quarter: 2006Q4

REPORT INFORMATION
  Report Type: 
  Country: None (occurrence: None)
  Receive Date: 20061013
  Receipt Date: 20061013
  Transmission Date: 20070319
  Serious: Yes (Hospitalization)
  Sender: FDA-Public Use
  Company Number: None

PATIENT
  Sex: Male
  Weight: 101.4 kg

DRUGS (12)
  1. TEMOZOLOMIDE [Suspect]
     Dosage: 1320 MG
  2. ACETAMINOPHEN [Concomitant]
  3. CALCIUM GLUCONATE [Concomitant]
  4. CLARITIN [Concomitant]
  5. DEXAMETHASONE TAB [Concomitant]
  6. ENALAPRIL MALEATE [Concomitant]
  7. FUROSEMIDE [Concomitant]
  8. LESCOL [Concomitant]
  9. LEVOTHYROXINE SODIUM [Concomitant]
  10. METOPROLOL TARTRATE [Concomitant]
  11. VITAMINS [Concomitant]
  12. ZOLOFT [Concomitant]

REACTIONS (2)
  - MEGAKARYOCYTES DECREASED [None]
  - THROMBOCYTOPENIA [None]
